FAERS Safety Report 16409331 (Version 1)
Quarter: 2019Q2

REPORT INFORMATION
  Report Type: Spontaneous
  Country: US (occurrence: US)
  Receive Date: 20190610
  Receipt Date: 20190610
  Transmission Date: 20190711
  Serious: Yes (Other)
  Sender: FDA-Public Use
  Company Number: US-JNJFOC-20190606430

PATIENT
  Age: 65 Year
  Sex: Male

DRUGS (2)
  1. IMBRUVICA [Suspect]
     Active Substance: IBRUTINIB
     Indication: PRODUCT USED FOR UNKNOWN INDICATION
     Route: 065
  2. DEPAKOTE [Suspect]
     Active Substance: DIVALPROEX SODIUM
     Indication: PRODUCT USED FOR UNKNOWN INDICATION
     Route: 065

REACTIONS (27)
  - Injury [Unknown]
  - Pain [Unknown]
  - Nail disorder [Unknown]
  - Dry skin [Unknown]
  - Contusion [Unknown]
  - Cough [Unknown]
  - Choking [Unknown]
  - Head injury [Unknown]
  - Nightmare [Unknown]
  - Thyroid hormones decreased [Unknown]
  - Depression [Unknown]
  - Musculoskeletal pain [Unknown]
  - Fall [Unknown]
  - Dry eye [Unknown]
  - Dizziness [Unknown]
  - Ligament sprain [Unknown]
  - Dry mouth [Unknown]
  - Retching [Unknown]
  - Nausea [Unknown]
  - Oropharyngeal pain [Unknown]
  - Dyspepsia [Unknown]
  - Feeling abnormal [Unknown]
  - Balance disorder [Unknown]
  - Mood swings [Unknown]
  - Weight increased [Unknown]
  - Middle insomnia [Unknown]
  - Platelet count decreased [Unknown]
